FAERS Safety Report 16687553 (Version 2)
Quarter: 2019Q3

REPORT INFORMATION
  Report Type: Spontaneous
  Country: US (occurrence: US)
  Receive Date: 20190809
  Receipt Date: 20190902
  Transmission Date: 20191004
  Serious: No
  Sender: FDA-Public Use
  Company Number: US-JNJFOC-20190723177

PATIENT
  Age: 48 Year
  Sex: Female

DRUGS (1)
  1. TREMFYA [Suspect]
     Active Substance: GUSELKUMAB
     Indication: PSORIASIS
     Dosage: 100 MG FOR 2ND DOSE AT WEEK 4 SC.
     Route: 058
     Dates: start: 201906

REACTIONS (3)
  - Accidental exposure to product [Not Recovered/Not Resolved]
  - Device malfunction [Not Recovered/Not Resolved]
  - Underdose [Not Recovered/Not Resolved]

NARRATIVE: CASE EVENT DATE: 201907
